FAERS Safety Report 8418328-7 (Version None)
Quarter: 2012Q2

REPORT INFORMATION
  Report Type: 
  Country: None (occurrence: None)
  Receive Date: 20120607
  Receipt Date: 20120531
  Transmission Date: 20120825
  Serious: Yes (Other)
  Sender: FDA-Public Use
  Company Number: US-NOVOPROD-352896

PATIENT
  Age: 55 Year
  Sex: Female

DRUGS (2)
  1. VICTOZA [Suspect]
     Indication: TYPE 2 DIABETES MELLITUS
     Dosage: 0.6 MG, QD
     Route: 058
     Dates: start: 20120514, end: 20120520
  2. VICTOZA [Suspect]
     Dosage: 1.2MG QD
     Dates: start: 20120521, end: 20120530

REACTIONS (4)
  - INFLUENZA LIKE ILLNESS [None]
  - PRURITUS [None]
  - HYPERHIDROSIS [None]
  - ABDOMINAL PAIN UPPER [None]
